FAERS Safety Report 8795269 (Version 2)
Quarter: 2012Q4

REPORT INFORMATION
  Report Type: Report from Study
  Country: US (occurrence: US)
  Receive Date: 20120917
  Receipt Date: 20121011
  Transmission Date: 20130627
  Serious: Yes (Other)
  Sender: FDA-Public Use
  Company Number: US-ROCHE-1117193

PATIENT
  Age: 67 Year
  Sex: Female
  Weight: 76.8 kg

DRUGS (11)
  1. BLINDED ROACTEMRA [Suspect]
     Indication: RHEUMATOID ARTHRITIS
     Dosage: Q2W, Most recent dose prior to SAE 14/Sep/2011
     Route: 058
     Dates: start: 20110413
  2. ROACTEMRA [Suspect]
     Indication: RHEUMATOID ARTHRITIS
     Dosage: Q2W, Most recent dose prior to SAE:28/Aug/2012
     Route: 058
     Dates: start: 20110928
  3. NORCO [Concomitant]
     Indication: RHEUMATOID ARTHRITIS
     Dosage: 10mg / 325mg
     Route: 048
  4. DEXILANT [Concomitant]
     Route: 048
  5. CALTRATE [Concomitant]
     Route: 048
  6. FOLIC ACID [Concomitant]
     Route: 048
  7. METHOTREXATE [Concomitant]
     Indication: RHEUMATOID ARTHRITIS
     Route: 058
     Dates: start: 20080703
  8. ASPIRIN [Concomitant]
     Route: 048
  9. COD LIVER OIL [Concomitant]
     Route: 048
  10. OMEPRAZOLE [Concomitant]
     Indication: RHEUMATOID ARTHRITIS
     Route: 048
     Dates: start: 20120509
  11. CIPRO [Concomitant]
     Route: 048
     Dates: start: 20120906

REACTIONS (1)
  - Neutropenia [Not Recovered/Not Resolved]
